FAERS Safety Report 6057233-0 (Version None)
Quarter: 2009Q1

REPORT INFORMATION
  Report Type: 
  Country: None (occurrence: None)
  Receive Date: 20090129
  Receipt Date: 20080502
  Transmission Date: 20090719
  Serious: No
  Sender: FDA-Public Use
  Company Number: A0727082A

PATIENT
  Sex: Female

DRUGS (1)
  1. BUPROPION HCL [Suspect]
     Indication: DRUG USE FOR UNKNOWN INDICATION

REACTIONS (3)
  - PRODUCT QUALITY ISSUE [None]
  - WEIGHT DECREASED [None]
  - WEIGHT INCREASED [None]
